FAERS Safety Report 8865291 (Version 1)
Quarter: 2012Q4

REPORT INFORMATION
  Report Type: 
  Country: US (occurrence: US)
  Receive Date: 20121024
  Receipt Date: 20121024
  Transmission Date: 20130627
  Serious: No
  Sender: FDA-Public Use
  Company Number: US-AMGEN-USASP2012002069

PATIENT
  Age: 54 Year
  Sex: Male

DRUGS (6)
  1. ENBREL [Suspect]
     Indication: PRODUCT USED FOR UNKNOWN INDICATION
     Dosage: 50 mg, qwk
     Route: 058
  2. METHOTREXATE [Concomitant]
     Dosage: 2.5 mg, UNK
  3. PREDNISONE [Concomitant]
     Dosage: 5 mg, UNK
  4. LEXAPRO [Concomitant]
     Dosage: 10 mg, UNK
  5. VITAMIN A /00056001/ [Concomitant]
     Dosage: 1000 IU, UNK
  6. FOLIC ACID [Concomitant]
     Dosage: 1000 mug, UNK

REACTIONS (2)
  - Weight increased [Unknown]
  - Pain [Unknown]
